FAERS Safety Report 10070228 (Version 1)
Quarter: 2014Q2

REPORT INFORMATION
  Report Type: Spontaneous
  Country: US (occurrence: None)
  Receive Date: 20140408
  Receipt Date: 20140408
  Transmission Date: 20141212
  Serious: Yes (Hospitalization)
  Sender: FDA-Public Use
  Company Number: 20140172

PATIENT
  Age: 54 Year
  Sex: Male

DRUGS (6)
  1. DEXAMETHASONE SODIUM PHOSPHATE INJECTION, USP (4901-25) 4 MG/ML [Suspect]
     Indication: ANTIEMETIC SUPPORTIVE CARE
  2. GLUCOSE [Suspect]
     Indication: FLUID REPLACEMENT
     Route: 042
  3. LEUCOVORIN (FOLINIC ACID) [Concomitant]
  4. HYPOGLYCEMIC AGENTS [Concomitant]
  5. OXALIPLATIN [Concomitant]
  6. FLUOROURACIL [Concomitant]

REACTIONS (3)
  - Hyperglycaemia [None]
  - Blood lactic acid increased [None]
  - Off label use [None]
